FAERS Safety Report 5905471-7 (Version None)
Quarter: 2008Q4

REPORT INFORMATION
  Report Type: 
  Country: None (occurrence: None)
  Receive Date: 20081002
  Receipt Date: 20080911
  Transmission Date: 20090506
  Serious: Yes (Hospitalization, Other)
  Sender: FDA-Public Use
  Company Number: TR-BAYER-200826330GPV

PATIENT
  Age: 26 Year
  Sex: Female

DRUGS (1)
  1. CIPROFLOXACIN [Suspect]
     Indication: BRONCHITIS
     Dosage: TOTAL DAILY DOSE: 1000 MG
     Route: 065

REACTIONS (9)
  - DYSPHAGIA [None]
  - DYSURIA [None]
  - MUCOSAL EROSION [None]
  - OCULAR ICTERUS [None]
  - PYREXIA [None]
  - RASH [None]
  - RASH MACULAR [None]
  - STEVENS-JOHNSON SYNDROME [None]
  - VANISHING BILE DUCT SYNDROME [None]
